FAERS Safety Report 18466169 (Version 1)
Quarter: 2020Q4

REPORT INFORMATION
  Report Type: Spontaneous
  Country: FR (occurrence: FR)
  Receive Date: 20201105
  Receipt Date: 20201105
  Transmission Date: 20210114
  Serious: Yes (Hospitalization, Other)
  Sender: FDA-Public Use
  Company Number: FR-SHILPA MEDICARE LIMITED-SML-FR-2020-00568

PATIENT
  Sex: Male
  Weight: 67 kg

DRUGS (4)
  1. DEPAKINE [Concomitant]
     Active Substance: VALPROATE SODIUM
     Indication: EPILEPSY
     Route: 048
     Dates: start: 201901
  2. URBANYL [Concomitant]
     Active Substance: CLOBAZAM
     Indication: EPILEPSY
     Route: 048
     Dates: start: 201901
  3. LAMICTAL [Concomitant]
     Active Substance: LAMOTRIGINE
     Indication: EPILEPSY
     Dosage: 200 MG, DISPERSIBLE OR CHEWABLE TABLET
     Dates: start: 201804
  4. IMATINIB, UNKNOWN [Suspect]
     Active Substance: IMATINIB
     Indication: CHRONIC MYELOID LEUKAEMIA
     Route: 048
     Dates: start: 20200713, end: 20201010

REACTIONS (1)
  - Hepatitis [Not Recovered/Not Resolved]

NARRATIVE: CASE EVENT DATE: 20201010
